FAERS Safety Report 7058139-0 (Version None)
Quarter: 2010Q4

REPORT INFORMATION
  Report Type: 
  Country: None (occurrence: None)
  Receive Date: 20101022
  Receipt Date: 20081216
  Transmission Date: 20110411
  Serious: Yes (Hospitalization)
  Sender: FDA-Public Use
  Company Number: BR-PFIZER INC-2008023801

PATIENT
  Age: 66 Year
  Sex: Female

DRUGS (13)
  1. BLINDED *IBUPROFEN [Suspect]
     Indication: OSTEOARTHRITIS
     Dosage: MULTIPLE ARMS
     Route: 048
     Dates: start: 20071113
  2. NAPROXEN [Suspect]
     Indication: OSTEOARTHRITIS
     Dosage: MULTIPLE ARMS
     Route: 048
     Dates: start: 20071113
  3. BLINDED *NO SUBJECT DRUG [Suspect]
     Indication: OSTEOARTHRITIS
     Dosage: MULTIPLE ARMS
     Route: 048
     Dates: start: 20071113
  4. BLINDED *PLACEBO [Suspect]
     Indication: OSTEOARTHRITIS
     Dosage: MULTIPLE ARMS
     Route: 048
     Dates: start: 20071113
  5. BLINDED CELECOXIB [Suspect]
     Indication: OSTEOARTHRITIS
     Dosage: MULTIPLE ARMS
     Route: 048
     Dates: start: 20071113
  6. BLINDED IBUPROFEN [Suspect]
     Dosage: MULTIPLE ARMS
     Route: 048
     Dates: start: 20071113
  7. NAPROXEN [Suspect]
     Dosage: MULTIPLE ARMS
     Route: 048
     Dates: start: 20071113
  8. NEXIUM [Concomitant]
     Route: 048
     Dates: start: 20071113
  9. METFORMIN [Concomitant]
     Route: 048
     Dates: start: 20030101
  10. GLIBENCLAMIDE [Concomitant]
     Route: 048
     Dates: start: 20000101
  11. CAPTOPRIL [Concomitant]
     Route: 048
     Dates: start: 19990101
  12. HYDROCHLOROTHIAZIDE [Concomitant]
     Route: 048
     Dates: start: 20071113
  13. ACETYLSALICYLIC ACID SRT [Concomitant]
     Route: 048
     Dates: start: 20080213

REACTIONS (2)
  - HYPERTENSIVE CRISIS [None]
  - INTERVERTEBRAL DISC PROTRUSION [None]
